FAERS Safety Report 22180296 (Version 6)
Quarter: 2025Q1

REPORT INFORMATION
  Report Type: Spontaneous
  Country: US (occurrence: US)
  Receive Date: 20230406
  Receipt Date: 20250225
  Transmission Date: 20250409
  Serious: No
  Sender: PFIZER
  Company Number: US-PFIZER INC-PV202300061910

PATIENT
  Age: 66 Year
  Sex: Female
  Weight: 102.06 kg

DRUGS (2)
  1. XELJANZ XR [Suspect]
     Active Substance: TOFACITINIB CITRATE
     Indication: Rheumatoid arthritis
     Dosage: 11MG TABLETS ONCE A DAY
     Dates: start: 202306
  2. IBUPROFEN [Concomitant]
     Active Substance: IBUPROFEN
     Indication: Pain

REACTIONS (11)
  - Memory impairment [Unknown]
  - COVID-19 [Unknown]
  - Abdominal distension [Unknown]
  - Bowel movement irregularity [Unknown]
  - Abdominal pain upper [Unknown]
  - Dairy intolerance [Unknown]
  - Condition aggravated [Unknown]
  - Thinking abnormal [Unknown]
  - Gait inability [Unknown]
  - Confusional state [Unknown]
  - Pain [Unknown]
